FAERS Safety Report 12870830 (Version 1)
Quarter: 2016Q4

REPORT INFORMATION
  Report Type: Spontaneous
  Country: US (occurrence: US)
  Receive Date: 20161021
  Receipt Date: 20161021
  Transmission Date: 20170207
  Serious: Yes (Disabling)
  Sender: FDA-Public Use
  Company Number: None

PATIENT
  Age: 62 Year
  Sex: Female
  Weight: 71.73 kg

DRUGS (8)
  1. VITAMIN D [Concomitant]
     Active Substance: CHOLECALCIFEROL
  2. AMLODIPINE [Concomitant]
     Active Substance: AMLODIPINE BESYLATE
  3. HYOSCYAMINE 01.25MG SUBLINGUAL TAB [Suspect]
     Active Substance: HYOSCYAMINE
     Indication: BLADDER SPASM
     Dosage: 1.25 MG FOUR TIME A DAY 4 TIME DAY DISLOVE 1 TABLET ON TONGUE 4 TIMES A DAY.
     Route: 060
     Dates: start: 20160819, end: 20160829
  4. METFORMIN [Concomitant]
     Active Substance: METFORMIN HYDROCHLORIDE
  5. LINISTPRIL [Concomitant]
  6. CRESTOR [Concomitant]
     Active Substance: ROSUVASTATIN CALCIUM
  7. ASPRIN [Concomitant]
     Active Substance: ASPIRIN
  8. AMITRIPTYLINE [Concomitant]
     Active Substance: AMITRIPTYLINE

REACTIONS (5)
  - Feeling abnormal [None]
  - Fungal infection [None]
  - Dry mouth [None]
  - Arthralgia [None]
  - Nausea [None]

NARRATIVE: CASE EVENT DATE: 20160819
